FAERS Safety Report 7531789-0 (Version None)
Quarter: 2011Q2

REPORT INFORMATION
  Report Type: 
  Country: None (occurrence: None)
  Receive Date: 20110608
  Receipt Date: 20110606
  Transmission Date: 20111010
  Serious: Yes (Other)
  Sender: FDA-Public Use
  Company Number: US-ABBOTT-11P-163-0716092-00

PATIENT
  Sex: Female
  Weight: 95.34 kg

DRUGS (18)
  1. PRAVASTATIN [Suspect]
     Indication: BLOOD CHOLESTEROL INCREASED
  2. METOCLOPRAMIDE [Concomitant]
     Indication: NAUSEA
  3. LANTUS [Concomitant]
     Indication: TYPE 2 DIABETES MELLITUS
     Route: 058
  4. VITAMIN E [Concomitant]
     Indication: VITAMIN SUPPLEMENTATION
  5. LASIX [Concomitant]
     Indication: HYPERTENSION
  6. METOPROLOL SUCCINATE [Concomitant]
     Indication: HYPERTENSION
  7. VALIUM [Concomitant]
     Indication: ANXIETY
  8. PROMETHAZINE [Concomitant]
     Indication: VOMITING
  9. LEVOTHYROXINE SODIUM [Concomitant]
     Indication: HYPOTHYROIDISM
  10. HYDROXYZINE [Concomitant]
     Indication: PRURITUS
  11. ZETIA [Concomitant]
     Indication: BLOOD CHOLESTEROL INCREASED
  12. VITAMIN D [Concomitant]
     Indication: VITAMIN SUPPLEMENTATION
     Dates: start: 20100101
  13. PROMETHAZINE [Concomitant]
     Indication: NAUSEA
  14. CORTISONE ACETATE [Concomitant]
     Indication: JOINT SWELLING
     Route: 035
     Dates: start: 20100101, end: 20100101
  15. ALOE [Concomitant]
     Indication: ABDOMINAL PAIN UPPER
     Route: 048
  16. HUMIRA [Suspect]
  17. HUMIRA [Suspect]
     Indication: PSORIATIC ARTHROPATHY
     Dates: start: 20100101
  18. NOVOLOG [Concomitant]
     Indication: TYPE 2 DIABETES MELLITUS
     Route: 058

REACTIONS (20)
  - INJECTION SITE ERYTHEMA [None]
  - EYE SWELLING [None]
  - VISUAL IMPAIRMENT [None]
  - DYSGEUSIA [None]
  - OEDEMA PERIPHERAL [None]
  - VERTIGO [None]
  - THERMAL BURN [None]
  - BLISTER [None]
  - DIZZINESS [None]
  - EYE PRURITUS [None]
  - EYE INFECTION [None]
  - HEPATIC ENZYME INCREASED [None]
  - VITAMIN D DECREASED [None]
  - HAEMORRHAGE [None]
  - CEREBROVASCULAR ACCIDENT [None]
  - HEADACHE [None]
  - BLOOD CHOLESTEROL INCREASED [None]
  - PAIN IN EXTREMITY [None]
  - RASH [None]
  - OCULAR HYPERAEMIA [None]
